FAERS Safety Report 8407567 (Version 3)
Quarter: 2013Q2

REPORT INFORMATION
  Report Type: Spontaneous
  Country: US (occurrence: US)
  Receive Date: 20120215
  Receipt Date: 20130508
  Transmission Date: 20140414
  Serious: Yes (Other)
  Sender: FDA-Public Use
  Company Number: US-ROCHE-783740

PATIENT
  Age: 21 Year
  Sex: Female
  Weight: 70.82 kg

DRUGS (1)
  1. ACCUTANE [Suspect]
     Indication: ACNE
     Route: 065
     Dates: start: 19990729, end: 200001

REACTIONS (7)
  - Colitis ulcerative [Unknown]
  - Inflammatory bowel disease [Unknown]
  - Stress [Unknown]
  - Irritable bowel syndrome [Unknown]
  - Skin exfoliation [Unknown]
  - Lip dry [Unknown]
  - Road traffic accident [Unknown]
